FAERS Safety Report 6640797-3 (Version None)
Quarter: 2010Q1

REPORT INFORMATION
  Report Type: 
  Country: None (occurrence: None)
  Receive Date: 20100318
  Receipt Date: 20100308
  Transmission Date: 20100710
  Serious: Yes (Hospitalization, Other)
  Sender: FDA-Public Use
  Company Number: TR-ELI_LILLY_AND_COMPANY-TR201003003676

PATIENT
  Age: 33 Year
  Sex: Female

DRUGS (4)
  1. HUMULIN 70/30 [Suspect]
     Indication: GESTATIONAL DIABETES
     Dosage: 24 IU, EACH MORNING
     Route: 058
     Dates: start: 20090101
  2. HUMULIN 70/30 [Suspect]
     Dosage: 14 IU, EACH EVENING
     Route: 058
     Dates: start: 20090101
  3. VITAMINS NOS [Concomitant]
     Dosage: UNK, DAILY (1/D)
  4. CALCIUM [Concomitant]
     Dosage: UNK, DAILY (1/D)

REACTIONS (2)
  - DRUG EXPOSURE DURING PREGNANCY [None]
  - HYPERTENSION [None]
